FAERS Safety Report 24414000 (Version 1)
Quarter: 2024Q4

REPORT INFORMATION
  Report Type: Spontaneous
  Country: FR (occurrence: FR)
  Receive Date: 20241008
  Receipt Date: 20241008
  Transmission Date: 20250115
  Serious: No
  Sender: SANDOZ
  Company Number: FR-SANDOZ-SDZ2024FR084815

PATIENT
  Age: 6 Year
  Sex: Male

DRUGS (1)
  1. OMNITROPE [Suspect]
     Active Substance: SOMATROPIN
     Indication: Growth retardation
     Dosage: 0.4 MG FOR 1 MONTH, THEN 0.6 MG
     Route: 065

REACTIONS (2)
  - Circumstance or information capable of leading to medication error [Unknown]
  - Device mechanical issue [Unknown]
